FAERS Safety Report 5212720-X (Version None)
Quarter: 2006Q4

REPORT INFORMATION
  Report Type: 
  Country: None (occurrence: None)
  Receive Date: 20061115
  Receipt Date: 20060706
  Transmission Date: 20070319
  Serious: Yes (Hospitalization, Other)
  Sender: FDA-Public Use
  Company Number: 200614536BWH

PATIENT
  Age: 51 Year
  Sex: Female
  Weight: 82.5547 kg

DRUGS (9)
  1. NEXAVAR [Suspect]
     Indication: RENAL CELL CARCINOMA STAGE UNSPECIFIED
     Dosage: 400 MG, BID, ORAL
     Route: 048
     Dates: start: 20060626, end: 20061006
  2. ELAVIL [Concomitant]
  3. WELLBUTRIN [Concomitant]
  4. NEURONTIN [Concomitant]
  5. CLONIDINE [Concomitant]
  6. NEXIUM [Concomitant]
  7. PREDNISONE [Concomitant]
  8. ALBUTEROL [Concomitant]
  9. PERCOCET [Concomitant]

REACTIONS (22)
  - ABDOMINAL PAIN UPPER [None]
  - ARTHRALGIA [None]
  - BLISTER [None]
  - CHEST DISCOMFORT [None]
  - DRY MOUTH [None]
  - DYSPNOEA [None]
  - FATIGUE [None]
  - FIBROMYALGIA [None]
  - GASTROOESOPHAGEAL REFLUX DISEASE [None]
  - HYPERKERATOSIS [None]
  - LIPASE INCREASED [None]
  - MUSCULOSKELETAL CHEST PAIN [None]
  - PAIN IN EXTREMITY [None]
  - PALMAR-PLANTAR ERYTHRODYSAESTHESIA SYNDROME [None]
  - PANCREATITIS [None]
  - PANCREATITIS ACUTE [None]
  - PNEUMONIA [None]
  - RASH [None]
  - RED BLOOD CELL SEDIMENTATION RATE INCREASED [None]
  - SKIN EXFOLIATION [None]
  - SKIN LESION [None]
  - SPINAL DISORDER [None]
